FAERS Safety Report 9019784 (Version 5)
Quarter: 2014Q2

REPORT INFORMATION
  Report Type: Spontaneous
  Country: US (occurrence: US)
  Receive Date: 20130118
  Receipt Date: 20140519
  Transmission Date: 20141212
  Serious: Yes (Hospitalization, Disabling, Other)
  Sender: FDA-Public Use
  Company Number: US-009507513-1201USA00747

PATIENT
  Sex: Female
  Weight: 60.77 kg

DRUGS (3)
  1. FOSAMAX [Suspect]
     Indication: OSTEOPENIA
     Dosage: 10 MG, QD
     Route: 048
     Dates: start: 20010210, end: 200912
  2. FOSAMAX [Suspect]
     Dosage: 70 MG, QW
     Route: 048
     Dates: start: 20020519, end: 200609
  3. FOSAMAX PLUS D [Suspect]
     Indication: OSTEOPENIA
     Dosage: 70 MG, QW
     Route: 048
     Dates: start: 20010210, end: 200912

REACTIONS (18)
  - Femur fracture [Recovered/Resolved]
  - Fall [Unknown]
  - Intramedullary rod insertion [Unknown]
  - Anaemia postoperative [Unknown]
  - Breast cancer stage II [Unknown]
  - Neoplasm malignant [Unknown]
  - Mastectomy [Unknown]
  - Dizziness [Unknown]
  - Tooth disorder [Unknown]
  - Hypercholesterolaemia [Not Recovered/Not Resolved]
  - Myofascial pain syndrome [Unknown]
  - Hypertension [Unknown]
  - Benign breast neoplasm [Unknown]
  - Osteoporosis [Unknown]
  - Weight increased [Unknown]
  - Osteoarthritis [Unknown]
  - Pain in extremity [Unknown]
  - Gastritis [Unknown]
